FAERS Safety Report 4600538-8 (Version None)
Quarter: 2005Q1

REPORT INFORMATION
  Report Type: 
  Country: None (occurrence: None)
  Receive Date: 20050304
  Receipt Date: 20050217
  Transmission Date: 20050727
  Serious: Yes (Hospitalization)
  Sender: FDA-Public Use
  Company Number: AZAAU200400212

PATIENT
  Age: 66 Year
  Sex: Male

DRUGS (7)
  1. VIDAZA [Suspect]
     Indication: MYELODYSPLASTIC SYNDROME
     Dosage: 100 MG, SUBCUTANEOUS
     Route: 058
     Dates: start: 20040823, end: 20040827
  2. VIDAZA [Suspect]
     Indication: MYELODYSPLASTIC SYNDROME
     Dosage: 100 MG, SUBCUTANEOUS
     Route: 058
     Dates: start: 20041004, end: 20041008
  3. VIDAZA [Suspect]
     Indication: MYELODYSPLASTIC SYNDROME
     Dosage: 100 MG, SUBCUTANEOUS
     Route: 058
     Dates: start: 20041108, end: 20041112
  4. RAMIPRIL [Concomitant]
  5. PANTOPRAZOLE (PANTOPRAZOLE) [Concomitant]
  6. TESTOSTERONE [Concomitant]
  7. ERYTHROPOEITIN (ERYTHROPOEITIN) [Concomitant]

REACTIONS (4)
  - GRAND MAL CONVULSION [None]
  - INFECTION [None]
  - PNEUMONIA ASPERGILLUS [None]
  - TOXIC INDUCED ENCEPHALOPATHY [None]
